FAERS Safety Report 7276125-2 (Version None)
Quarter: 2011Q1

REPORT INFORMATION
  Report Type: 
  Country: None (occurrence: None)
  Receive Date: 20110131
  Receipt Date: 20110118
  Transmission Date: 20110831
  Serious: Yes (Hospitalization, Other)
  Sender: FDA-Public Use
  Company Number: 2011JP005470

PATIENT
  Age: 47 Year
  Sex: Female
  Weight: 44 kg

DRUGS (18)
  1. NAIXAN (NAPROXEN SODIUM) [Concomitant]
  2. ESRON B (MAGNESIUM CHLORIDE ANHYDROUS, MALTOSE, POTASSIUM CHLORIDE, PO [Concomitant]
  3. PRIMPERAN ELIXIR [Concomitant]
  4. RESPLEN (EPRAZINONE HYDROCHLORIDE) [Concomitant]
  5. CISPLATIN [Suspect]
     Indication: NON-SMALL CELL LUNG CANCER METASTATIC
     Dosage: 75 MG/M2, QD, IV DRIP
     Route: 041
     Dates: start: 20101202, end: 20101202
  6. MANNITOL S (MANNITOL, SORBITOL) [Concomitant]
  7. GRANISETRON HCI (GRANISETRON) [Concomitant]
  8. REPLAS1 [Concomitant]
  9. ALOXI [Suspect]
     Indication: PROPHYLAXIS OF NAUSEA AND VOMITING
     Dosage: 0.75 MG, SINGLE, IV DRIP
     Route: 041
     Dates: start: 20101202, end: 20101202
  10. GANATON (ITOPRIDE HYDROCHLORIDE) [Concomitant]
  11. REBAMIPIDE (REBAMIPIDE) [Concomitant]
  12. FLAVERIC (BENPROPERINE HYDROCHLORIDE) [Concomitant]
  13. IRINOTECAN (IRINOTECAN HYDROCHLORIDE) 40 MG [Suspect]
     Indication: NON-SMALL CELL LUNG CANCER METASTATIC
     Dosage: 80 MG, QD, IV DRIP
     Route: 041
     Dates: start: 20101202, end: 20101216
  14. OMEPRAL (OMEPRAZOLE SODIUM) [Suspect]
     Dosage: 10 MG, QD, ORAL
     Route: 048
     Dates: start: 20101112, end: 20101220
  15. DEXART (DEXAMETHASONE SODIUM PHOSPHATE) [Suspect]
     Indication: PROPHYLAXIS OF NAUSEA AND VOMITING
     Dosage: 3.3 MG, QD, IV DRIP, 6.6 MG, QD, IV DRIP
     Route: 041
     Dates: start: 20101203, end: 20101216
  16. DEXART (DEXAMETHASONE SODIUM PHOSPHATE) [Suspect]
     Indication: PROPHYLAXIS OF NAUSEA AND VOMITING
     Dosage: 3.3 MG, QD, IV DRIP, 6.6 MG, QD, IV DRIP
     Route: 041
     Dates: start: 20101202, end: 20101202
  17. EMEND [Suspect]
     Indication: PROPHYLAXIS OF NAUSEA AND VOMITING
     Dosage: 80 25 MG, QD, ORAL
     Route: 048
     Dates: start: 20101202, end: 20101204
  18. CODEINE PHOSPHATE (CODEINE PHOSPHATE) [Concomitant]

REACTIONS (6)
  - EOSINOPHIL COUNT INCREASED [None]
  - CONDITION AGGRAVATED [None]
  - RASH [None]
  - PYREXIA [None]
  - ERYTHEMA [None]
  - SKIN EXFOLIATION [None]
